FAERS Safety Report 9458266 (Version 2)
Quarter: 2013Q4

REPORT INFORMATION
  Report Type: Spontaneous
  Country: IT (occurrence: IT)
  Receive Date: 20130814
  Receipt Date: 20131002
  Transmission Date: 20140711
  Serious: Yes (Hospitalization)
  Sender: FDA-Public Use
  Company Number: IT-PFIZER INC-2013233834

PATIENT
  Age: 83 Year
  Sex: Female

DRUGS (12)
  1. UNASYN [Suspect]
     Indication: PNEUMONIA CHLAMYDIAL
     Dosage: 4.5 MG, 1X/DAY
     Route: 042
     Dates: start: 20130710, end: 20130715
  2. LEVOFLOXACIN [Suspect]
     Indication: PNEUMONIA CHLAMYDIAL
     Dosage: 500 MG, 1X/DAY
     Route: 042
     Dates: start: 20130713, end: 20130714
  3. ACETYLSALICYLIC ACID [Concomitant]
     Dosage: 100 MG, UNK
     Route: 048
  4. AMLODIPINE [Concomitant]
     Dosage: 10 MG, UNK
     Route: 048
  5. RAMIPRIL [Concomitant]
     Dosage: 5 MG, UNK
     Route: 048
  6. PARACETAMOL [Concomitant]
     Dosage: 2000 MG, UNK
     Route: 048
  7. SEQUACOR [Concomitant]
     Dosage: 2.5 MG, UNK
     Route: 048
  8. LASIX [Concomitant]
     Dosage: 50 MG, UNK
     Route: 048
  9. ROCALTROL [Concomitant]
     Dosage: 0.25 UG, UNK
     Route: 048
  10. TAVOR [Concomitant]
     Dosage: 1 MG, UNK
     Route: 048
  11. ZITROMAX [Concomitant]
     Dosage: 500 MG, UNK
     Route: 048
     Dates: start: 20130710, end: 20130726
  12. FOLINA [Concomitant]
     Dosage: 5 MG, UNK
     Route: 048

REACTIONS (1)
  - Toxic skin eruption [Recovered/Resolved with Sequelae]
